FAERS Safety Report 4866045-2 (Version None)
Quarter: 2005Q4

REPORT INFORMATION
  Report Type: 
  Country: None (occurrence: None)
  Receive Date: 20051221
  Receipt Date: 20051209
  Transmission Date: 20060501
  Serious: Yes (Death, Life-Threatening, Hospitalization)
  Sender: FDA-Public Use
  Company Number: 218262

PATIENT
  Age: 50 Year
  Sex: Male
  Weight: 70.2 kg

DRUGS (1)
  1. RITUXIMAB OR PLACEBO(RITUXIMAB) CONC FOR SOLUTION FOR INFUSION [Suspect]
     Indication: MULTIPLE SCLEROSIS
     Dosage: 1000 MG, DAYS 1 + 15, INTRAVENOUS
     Route: 042
     Dates: start: 20050703, end: 20050718

REACTIONS (5)
  - DEHYDRATION [None]
  - DISORIENTATION [None]
  - DYSPHAGIA [None]
  - PLATELET COUNT INCREASED [None]
  - PNEUMONIA ASPIRATION [None]
